FAERS Safety Report 10066899 (Version 3)
Quarter: 2014Q2

REPORT INFORMATION
  Report Type: Spontaneous
  Country: JP (occurrence: JP)
  Receive Date: 20140409
  Receipt Date: 20140609
  Transmission Date: 20141212
  Serious: Yes (Hospitalization)
  Sender: FDA-Public Use
  Company Number: JP-AMGEN-JPNSP2014025070

PATIENT
  Age: 45 Year
  Sex: Female

DRUGS (4)
  1. ENBREL [Suspect]
     Indication: RHEUMATOID ARTHRITIS
     Dosage: 50 MG, WEEKLY
     Route: 058
  2. RHEUMATREX                         /00113801/ [Suspect]
     Indication: RHEUMATOID ARTHRITIS
     Dosage: 16 MG, WEEKLY
     Route: 065
  3. AZULFIDINE EN [Suspect]
     Indication: RHEUMATOID ARTHRITIS
     Dosage: 1000 MG, 1X/DAY
     Route: 065
  4. PREDNISOLONE [Concomitant]
     Dosage: 4 MG, DAILY

REACTIONS (1)
  - Organising pneumonia [Recovered/Resolved]
